FAERS Safety Report 17070271 (Version 1)
Quarter: 2019Q4

REPORT INFORMATION
  Report Type: Spontaneous
  Country: US (occurrence: US)
  Receive Date: 20191025
  Receipt Date: 20191025
  Transmission Date: 20200122
  Serious: Yes (Hospitalization)
  Sender: FDA-Public Use
  Company Number: None

PATIENT
  Age: 83 Year
  Sex: Female

DRUGS (1)
  1. CAPECITABINE 500MG [Suspect]
     Active Substance: CAPECITABINE
     Dosage: ?          OTHER FREQUENCY:3 TABS DAILY X 14;?
     Route: 048
     Dates: start: 20190912

REACTIONS (2)
  - Infection [None]
  - Urethral stent insertion [None]

NARRATIVE: CASE EVENT DATE: 20191019
